FAERS Safety Report 25543246 (Version 1)
Quarter: 2025Q3

REPORT INFORMATION
  Report Type: Spontaneous
  Country: US (occurrence: US)
  Receive Date: 20250711
  Receipt Date: 20250711
  Transmission Date: 20251020
  Serious: Yes (Hospitalization, Other)
  Sender: B. BRAUN MEDICAL INC.
  Company Number: US-BBM-US-BBM-202502686

PATIENT
  Age: 15 Year
  Sex: Male
  Weight: 71.7 kg

DRUGS (30)
  1. METRONIDAZOLE [Suspect]
     Active Substance: METRONIDAZOLE
     Dates: start: 20230122, end: 20230130
  2. METRONIDAZOLE [Suspect]
     Active Substance: METRONIDAZOLE
     Dates: start: 20230313, end: 20230406
  3. MEROPENEM [Suspect]
     Active Substance: MEROPENEM
     Dates: start: 20230130, end: 20230222
  4. CEFEPIME [Suspect]
     Active Substance: CEFEPIME HYDROCHLORIDE
     Dates: start: 20230122, end: 20230130
  5. PIPERACILLIN SODIUM\TAZOBACTAM SODIUM [Suspect]
     Active Substance: PIPERACILLIN SODIUM\TAZOBACTAM SODIUM
     Dates: start: 20230109, end: 20230122
  6. PIPERACILLIN SODIUM\TAZOBACTAM SODIUM [Suspect]
     Active Substance: PIPERACILLIN SODIUM\TAZOBACTAM SODIUM
     Dates: start: 20230303, end: 20230314
  7. FLUCONAZOLE [Suspect]
     Active Substance: FLUCONAZOLE
     Dates: start: 20230113, end: 20230119
  8. FLUCONAZOLE [Suspect]
     Active Substance: FLUCONAZOLE
     Dates: start: 20230121, end: 20230131
  9. VANCOMYCIN [Suspect]
     Active Substance: VANCOMYCIN
     Dates: start: 20230122, end: 20230130
  10. VANCOMYCIN [Suspect]
     Active Substance: VANCOMYCIN
     Dates: start: 20230202, end: 20230206
  11. VANCOMYCIN [Suspect]
     Active Substance: VANCOMYCIN
     Dates: start: 20230215, end: 20230216
  12. VANCOMYCIN [Suspect]
     Active Substance: VANCOMYCIN
     Dates: start: 20230219, end: 20230222
  13. VANCOMYCIN [Suspect]
     Active Substance: VANCOMYCIN
     Dates: start: 20230306, end: 20230310
  14. VANCOMYCIN [Suspect]
     Active Substance: VANCOMYCIN
     Dates: start: 20230403, end: 20230409
  15. ERTAPENEM [Suspect]
     Active Substance: ERTAPENEM
  16. SULFAMETHOXAZOLE AND TRIMETHOPRIM [Suspect]
     Active Substance: SULFAMETHOXAZOLE\TRIMETHOPRIM
     Dates: start: 20230202, end: 20230215
  17. SULFAMETHOXAZOLE AND TRIMETHOPRIM [Suspect]
     Active Substance: SULFAMETHOXAZOLE\TRIMETHOPRIM
     Dates: start: 20230306, end: 20230314
  18. SULFAMETHOXAZOLE AND TRIMETHOPRIM [Suspect]
     Active Substance: SULFAMETHOXAZOLE\TRIMETHOPRIM
     Dates: start: 20230407, end: 20230414
  19. MINOCYCLINE [Suspect]
     Active Substance: MINOCYCLINE HYDROCHLORIDE
     Dates: start: 20230215, end: 20230222
  20. DOXYCYCLINE [Suspect]
     Active Substance: DOXYCYCLINE
     Dates: start: 20230420, end: 20230427
  21. CEFIDEROCOL [Suspect]
     Active Substance: CEFIDEROCOL
     Dates: start: 20230313, end: 20230406
  22. MICAFUNGIN [Suspect]
     Active Substance: MICAFUNGIN SODIUM
     Dates: start: 20230201, end: 20230202
  23. MICAFUNGIN [Suspect]
     Active Substance: MICAFUNGIN SODIUM
     Dates: start: 20230213, end: 20230406
  24. MICAFUNGIN [Suspect]
     Active Substance: MICAFUNGIN SODIUM
  25. VORICONAZOLE [Suspect]
     Active Substance: VORICONAZOLE
     Dates: start: 20230202, end: 20230203
  26. VORICONAZOLE [Suspect]
     Active Substance: VORICONAZOLE
     Dates: start: 20230206, end: 20230302
  27. ISAVUCONAZONIUM [Suspect]
     Active Substance: ISAVUCONAZONIUM
  28. AMPHOTERICIN B [Suspect]
     Active Substance: AMPHOTERICIN B
     Dates: start: 20230203, end: 20230222
  29. GANCICLOVIR [Suspect]
     Active Substance: GANCICLOVIR
     Dates: start: 20230223, end: 20230312
  30. CIDOFOVIR [Suspect]
     Active Substance: CIDOFOVIR
     Dates: start: 20230329, end: 20230405

REACTIONS (2)
  - Drug ineffective [Not Recovered/Not Resolved]
  - Organ failure [Not Recovered/Not Resolved]
